FAERS Safety Report 9191100 (Version 1)
Quarter: 2013Q1

REPORT INFORMATION
  Report Type: Spontaneous
  Country: US (occurrence: US)
  Receive Date: 20130326
  Receipt Date: 20130326
  Transmission Date: 20140127
  Serious: No
  Sender: FDA-Public Use
  Company Number: US-PFIZER INC-2013092312

PATIENT
  Age: 82 Year
  Sex: Female

DRUGS (1)
  1. SUTENT [Suspect]
     Indication: SMALL INTESTINE CARCINOMA
     Dosage: 25 MG, UNK
     Dates: start: 20120629

REACTIONS (1)
  - Quality of life decreased [Unknown]
